FAERS Safety Report 11391829 (Version 1)
Quarter: 2015Q3

REPORT INFORMATION
  Report Type: Spontaneous
  Country: FR (occurrence: FR)
  Receive Date: 20150818
  Receipt Date: 20150818
  Transmission Date: 20151125
  Serious: Yes (Death)
  Sender: FDA-Public Use
  Company Number: FR-SA-2015SA120769

PATIENT
  Age: 58 Year
  Sex: Male

DRUGS (4)
  1. LOVENOX [Suspect]
     Active Substance: ENOXAPARIN SODIUM
     Indication: ARTERIOGRAM CORONARY
     Route: 042
     Dates: start: 20150604, end: 20150604
  2. KRENOSIN [Suspect]
     Active Substance: ADENOSINE
     Indication: SCAN MYOCARDIAL PERFUSION
     Route: 022
     Dates: start: 20150604, end: 20150604
  3. IOMERON [Suspect]
     Active Substance: IOMEPROL
     Indication: ARTERIOGRAM CORONARY
     Route: 022
     Dates: start: 20150604, end: 20150604
  4. ASPIRIN PROTECT [Concomitant]
     Active Substance: ASPIRIN
     Dates: start: 20150527

REACTIONS (2)
  - Atrial fibrillation [Fatal]
  - Pulseless electrical activity [Fatal]

NARRATIVE: CASE EVENT DATE: 20150604
